FAERS Safety Report 9832241 (Version 2)
Quarter: 2014Q1

REPORT INFORMATION
  Report Type: Report from Study
  Country: IL (occurrence: IL)
  Receive Date: 20140121
  Receipt Date: 20140131
  Transmission Date: 20141002
  Serious: Yes (Death, Hospitalization, Other)
  Sender: FDA-Public Use
  Company Number: PHHY2014IL005243

PATIENT
  Age: 77 Year
  Sex: Male

DRUGS (4)
  1. SANDOSTATIN LAR [Suspect]
     Indication: CARCINOID TUMOUR
     Dosage: 30 MG, ONCE EVERY 4 WEEKS
     Route: 030
     Dates: start: 20120101
  2. SANDOSTATIN LAR [Suspect]
     Dosage: 30 MG, ONCE EVERY 4 WEEKS
     Route: 030
     Dates: start: 20131216
  3. SANDOSTATIN [Suspect]
     Dosage: UKN, UKN UKN
     Route: 058
  4. SANDOSTATIN [Suspect]
     Dosage: UNK

REACTIONS (9)
  - Malignant neoplasm progression [Fatal]
  - Metastases to liver [Fatal]
  - Metastases to lung [Fatal]
  - Metastases to abdominal cavity [Fatal]
  - Metastases to bone [Fatal]
  - General physical health deterioration [Unknown]
  - Anaesthesia [Unknown]
  - Hypophagia [Unknown]
  - Asthenia [Unknown]
